FAERS Safety Report 10387708 (Version 1)
Quarter: 2014Q1

REPORT INFORMATION
  Report Type: Spontaneous
  Country: US (occurrence: None)
  Receive Date: 20140306
  Receipt Date: 20140306
  Transmission Date: 20141002
  Serious: Yes (Other)
  Sender: FDA-Public Use
  Company Number: 163-21880-13082886

PATIENT
  Age: 54 Year
  Sex: Female

DRUGS (12)
  1. REVLIMID (LENALIDOMIDE( 10 MILLIGRAM, CAPSULES) [Suspect]
     Indication: PLASMA CELL MYELOMA
     Dosage: 21 IN 28D
     Dates: start: 20120112
  2. FLUTICASONE (FLUTICASONE) [Concomitant]
  3. NEXIUM (ESOMEPRAZOLE) [Concomitant]
  4. ACYCLOVIR (ACICLOVIR) [Concomitant]
  5. ALLEGRA (FEXOFENADINE HYDROCHLORIDE) [Concomitant]
  6. DEXAMETHASONE (DEXAMETHASONE) [Concomitant]
  7. ACETAMINOPHEN (PARACETAMOL) [Concomitant]
  8. SMZ-TMP (BACTRIM) [Concomitant]
  9. IMODIUM AD (LOPERAMIDE HYDROCHLORIDE) [Concomitant]
  10. FLEXERIL (CYCLOBENZAPRINE HYDROCHLORIDE) [Concomitant]
  11. TRAMADOL/APAP (ULTRACET) [Concomitant]
  12. TRAMADOL (TRAMADOL) [Concomitant]

REACTIONS (2)
  - Monoclonal immunoglobulin present [None]
  - Blood magnesium increased [None]
